FAERS Safety Report 4454916-0 (Version None)
Quarter: 2004Q3

REPORT INFORMATION
  Report Type: 
  Country: None (occurrence: None)
  Receive Date: 20040921
  Receipt Date: 20040913
  Transmission Date: 20050211
  Serious: Yes (Other)
  Sender: FDA-Public Use
  Company Number: GB-GLAXOSMITHKLINE-B0345135A

PATIENT
  Sex: Female

DRUGS (1)
  1. FLIXOTIDE [Suspect]
     Indication: ASTHMA
     Route: 055

REACTIONS (6)
  - ABASIA [None]
  - AFFECTIVE DISORDER [None]
  - ASTHMA [None]
  - COUGH [None]
  - HEADACHE [None]
  - MEDICATION ERROR [None]
